FAERS Safety Report 8309770-3 (Version None)
Quarter: 2012Q2

REPORT INFORMATION
  Report Type: 
  Country: None (occurrence: None)
  Receive Date: 20120425
  Receipt Date: 20120418
  Transmission Date: 20120825
  Serious: Yes (Other)
  Sender: FDA-Public Use
  Company Number: PHHY2012CA008174

PATIENT
  Sex: Female

DRUGS (1)
  1. PAMIDRONATE DISODIUM [Suspect]
     Indication: MULTIPLE MYELOMA
     Route: 042
     Dates: start: 20120126

REACTIONS (16)
  - COUGH [None]
  - LYMPHOCYTE COUNT DECREASED [None]
  - BLOOD UREA INCREASED [None]
  - MALAISE [None]
  - VOMITING [None]
  - RED BLOOD CELL COUNT DECREASED [None]
  - RED CELL DISTRIBUTION WIDTH INCREASED [None]
  - HAEMATOCRIT DECREASED [None]
  - MEAN CELL VOLUME INCREASED [None]
  - BLOOD BILIRUBIN UNCONJUGATED INCREASED [None]
  - DIARRHOEA [None]
  - MEAN CELL HAEMOGLOBIN INCREASED [None]
  - BLOOD POTASSIUM DECREASED [None]
  - HAEMOGLOBIN DECREASED [None]
  - ANION GAP DECREASED [None]
  - BRONCHITIS [None]
